FAERS Safety Report 6282848-4 (Version None)
Quarter: 2009Q4

REPORT INFORMATION
  Report Type: 
  Country: None (occurrence: None)
  Receive Date: 20090722
  Receipt Date: 20090722
  Transmission Date: 20100525
  Serious: No
  Sender: FDA-Public Use
  Company Number: None

PATIENT
  Age: 42 Year
  Sex: Male

DRUGS (1)
  1. RIFABUTIN [Suspect]
     Dates: start: 20070720, end: 20071015

REACTIONS (10)
  - AIDS CHOLANGIOPATHY [None]
  - GALLBLADDER DISORDER [None]
  - HEPATIC INFECTION [None]
  - HEPATIC STEATOSIS [None]
  - HEPATOMEGALY [None]
  - HEPATOTOXICITY [None]
  - INCORRECT DOSE ADMINISTERED [None]
  - LIVER INJURY [None]
  - PANCREATIC DISORDER [None]
  - PERIPORTAL OEDEMA [None]
